FAERS Safety Report 5588270-8 (Version None)
Quarter: 2008Q1

REPORT INFORMATION
  Report Type: 
  Country: None (occurrence: None)
  Receive Date: 20080111
  Receipt Date: 20080109
  Transmission Date: 20080703
  Serious: Yes (Death)
  Sender: FDA-Public Use
  Company Number: US-ASTRAZENECA-2008UW00601

PATIENT
  Age: 52 Year
  Sex: Female

DRUGS (8)
  1. SEROQUEL [Suspect]
     Route: 048
  2. RESTORIL [Concomitant]
  3. ADVAIR DISKUS 100/50 [Concomitant]
  4. PRAVACHOL [Concomitant]
  5. FLEXERIL [Concomitant]
  6. COUMADIN [Concomitant]
  7. MS CONTIN [Concomitant]
  8. PERCOCET [Concomitant]

REACTIONS (1)
  - DEATH [None]
